FAERS Safety Report 9860316 (Version 2)
Quarter: 2014Q1

REPORT INFORMATION
  Report Type: Spontaneous
  Country: US (occurrence: US)
  Receive Date: 20140201
  Receipt Date: 20140201
  Transmission Date: 20141002
  Serious: Yes (Disabling)
  Sender: FDA-Public Use
  Company Number: US-GE HEALTHCARE MEDICAL DIAGNOSTICS-OSCN-PR-0812S-0667

PATIENT
  Age: 47 Year
  Sex: Female

DRUGS (16)
  1. OMNISCAN [Suspect]
     Indication: DIPLOPIA
     Dates: start: 20000705, end: 20000705
  2. OMNISCAN [Suspect]
     Indication: NEUROLOGICAL SYMPTOM
     Dates: start: 20000707, end: 20000707
  3. OMNISCAN [Suspect]
     Indication: INFECTION
     Dates: start: 20001103, end: 20001103
  4. OMNISCAN [Suspect]
     Indication: BACK PAIN
  5. OMNISCAN [Suspect]
     Indication: OSTEOMYELITIS
  6. OMNISCAN [Suspect]
     Indication: INTERVERTEBRAL DISCITIS
  7. PREDNISONE [Concomitant]
  8. EPOGEN [Concomitant]
  9. CATAPRES TTS [Concomitant]
  10. LOPRESSOR [Concomitant]
  11. ASPIRIN [Concomitant]
  12. ACIPHEX [Concomitant]
  13. CALCIUM CARBONATE [Concomitant]
  14. COMPAZINE [Concomitant]
  15. CELLCEPT [Concomitant]
  16. NEORAL [Concomitant]

REACTIONS (1)
  - Nephrogenic systemic fibrosis [Not Recovered/Not Resolved]
